FAERS Safety Report 10356211 (Version 3)
Quarter: 2014Q4

REPORT INFORMATION
  Report Type: Spontaneous
  Country: US (occurrence: US)
  Receive Date: 20140801
  Receipt Date: 20141009
  Transmission Date: 20150528
  Serious: Yes (Hospitalization, Other)
  Sender: FDA-Public Use
  Company Number: US-DRREDDYS-USA/USA/14/0042141

PATIENT
  Age: 55 Year
  Sex: Female
  Weight: 77.27 kg

DRUGS (8)
  1. CIPRO [Suspect]
     Active Substance: CIPROFLOXACIN HYDROCHLORIDE
     Indication: INFECTION
     Route: 048
     Dates: start: 20140606, end: 20140617
  2. LORTAB [Concomitant]
     Active Substance: ACETAMINOPHEN\HYDROCODONE BITARTRATE
     Indication: PAIN
     Route: 065
  3. AUGMENTIN [Suspect]
     Active Substance: AMOXICILLIN\CLAVULANATE POTASSIUM
     Indication: GASTROINTESTINAL INFECTION
     Route: 048
     Dates: start: 20140423, end: 20140602
  4. LORAZEPAM. [Concomitant]
     Active Substance: LORAZEPAM
     Indication: SLEEP DISORDER
     Route: 065
  5. FLAGYL [Suspect]
     Active Substance: METRONIDAZOLE\METRONIDAZOLE HYDROCHLORIDE
     Indication: GASTROINTESTINAL INFECTION
     Route: 048
     Dates: start: 20140423, end: 20140602
  6. NYSTATIN. [Suspect]
     Active Substance: NYSTATIN
     Indication: INFECTIVE GLOSSITIS
     Dates: start: 201405
  7. NYSTATIN. [Suspect]
     Active Substance: NYSTATIN
     Dates: start: 201406
  8. FLAGYL [Suspect]
     Active Substance: METRONIDAZOLE\METRONIDAZOLE HYDROCHLORIDE
     Route: 048
     Dates: start: 20140606, end: 20140617

REACTIONS (10)
  - Pruritus [Unknown]
  - Chromaturia [None]
  - Infective glossitis [Not Recovered/Not Resolved]
  - White blood cell count increased [Unknown]
  - Weight decreased [Not Recovered/Not Resolved]
  - Pain [Unknown]
  - Product quality issue [Unknown]
  - Diarrhoea [Not Recovered/Not Resolved]
  - Oral fungal infection [None]
  - Abdominal pain upper [Unknown]

NARRATIVE: CASE EVENT DATE: 20140423
